FAERS Safety Report 17148058 (Version 2)
Quarter: 2020Q1

REPORT INFORMATION
  Report Type: Report from Study
  Country: US (occurrence: US)
  Receive Date: 20191212
  Receipt Date: 20200226
  Transmission Date: 20200409
  Serious: No
  Sender: FDA-Public Use
  Company Number: NVSC2019US011900

PATIENT
  Age: 62 Year
  Sex: Female

DRUGS (1)
  1. ENTRESTO [Suspect]
     Active Substance: SACUBITRIL\VALSARTAN
     Indication: CARDIAC FAILURE
     Dosage: 24 MG, BID
     Route: 048
     Dates: start: 20191001

REACTIONS (2)
  - Bronchitis [Not Recovered/Not Resolved]
  - Weight fluctuation [Recovering/Resolving]

NARRATIVE: CASE EVENT DATE: 20200101
